FAERS Safety Report 4412785-9 (Version None)
Quarter: 2004Q3

REPORT INFORMATION
  Report Type: 
  Country: None (occurrence: None)
  Receive Date: 20040730
  Receipt Date: 20040730
  Transmission Date: 20050211
  Serious: Yes (Life-Threatening, Hospitalization)
  Sender: FDA-Public Use
  Company Number: None

PATIENT
  Age: 48 Year
  Sex: Male
  Weight: 71.7 kg

DRUGS (7)
  1. NAPROSYN [Suspect]
  2. HYDROCHLOROTHIAZIDE [Concomitant]
  3. SILDENAFIL CITRATE [Concomitant]
  4. LISINOPRIL [Concomitant]
  5. KETOROLAC TROMETHAMINE [Concomitant]
  6. BUPROPION HCL [Concomitant]
  7. IBUPROFEN [Concomitant]

REACTIONS (1)
  - ANAPHYLACTIC REACTION [None]
